FAERS Safety Report 7014167-2 (Version None)
Quarter: 2010Q3

REPORT INFORMATION
  Report Type: 
  Country: None (occurrence: None)
  Receive Date: 20100927
  Receipt Date: 20100913
  Transmission Date: 20110219
  Serious: Yes (Other)
  Sender: FDA-Public Use
  Company Number: BR-RANBAXY-2010R5-38258

PATIENT

DRUGS (3)
  1. ACYCLOVIR SODIUM [Suspect]
     Indication: HERPES ZOSTER
     Dosage: 400 MG, 6 TIMES PER DAY
     Route: 048
     Dates: start: 20100909
  2. NAPROXEN [Concomitant]
     Indication: PRODUCT USED FOR UNKNOWN INDICATION
     Dosage: 500 MG, BID
     Route: 065
  3. ENALAPRIL MALEATE + HYDROCHLORTHIAZIDE [Concomitant]
     Indication: PRODUCT USED FOR UNKNOWN INDICATION
     Dosage: HALF TABLET ONCE PER DAY
     Route: 065

REACTIONS (3)
  - EYE SWELLING [None]
  - EYELID OEDEMA [None]
  - WOUND [None]
